FAERS Safety Report 7772775-5 (Version None)
Quarter: 2011Q3

REPORT INFORMATION
  Report Type: 
  Country: None (occurrence: None)
  Receive Date: 20110922
  Receipt Date: 20110610
  Transmission Date: 20111222
  Serious: No
  Sender: FDA-Public Use
  Company Number: US-ASTRAZENECA-2011SE35601

PATIENT
  Age: 30 Year
  Sex: Female

DRUGS (3)
  1. LEMICTAL [Concomitant]
  2. CYMBALTA [Concomitant]
  3. SEROQUEL [Suspect]
     Route: 048

REACTIONS (1)
  - CONTUSION [None]
